FAERS Safety Report 14959040 (Version 1)
Quarter: 2018Q2

REPORT INFORMATION
  Report Type: Spontaneous
  Country: GB (occurrence: GB)
  Receive Date: 20180531
  Receipt Date: 20180531
  Transmission Date: 20180711
  Serious: Yes (Other)
  Sender: FDA-Public Use
  Company Number: GB-BAYER-2018-100671

PATIENT
  Age: 75 Year
  Sex: Female
  Weight: 58.8 kg

DRUGS (6)
  1. ASPIRIN. [Suspect]
     Active Substance: ASPIRIN
     Indication: THROMBOSIS PROPHYLAXIS
     Dosage: 150 MG, QD
     Route: 048
     Dates: start: 20180502, end: 20180505
  2. PINDOLOL. [Concomitant]
     Active Substance: PINDOLOL
  3. MAGNESIUM CHLORIDE. [Concomitant]
     Active Substance: MAGNESIUM CHLORIDE
  4. PARACETAMOL [Concomitant]
     Active Substance: ACETAMINOPHEN
  5. TEICOPLANIN [Concomitant]
     Active Substance: TEICOPLANIN
  6. OXYCODONE [Concomitant]
     Active Substance: OXYCODONE

REACTIONS (4)
  - Hypotension [Recovering/Resolving]
  - Tachycardia [Recovering/Resolving]
  - Haematemesis [Recovering/Resolving]
  - Haematemesis [Recovering/Resolving]

NARRATIVE: CASE EVENT DATE: 20180505
